FAERS Safety Report 12892473 (Version 1)
Quarter: 2016Q4

REPORT INFORMATION
  Report Type: Spontaneous
  Country: US (occurrence: US)
  Receive Date: 20161028
  Receipt Date: 20161028
  Transmission Date: 20170207
  Serious: No
  Sender: FDA-Public Use
  Company Number: US-PFIZER INC-2016497292

PATIENT
  Sex: Female

DRUGS (1)
  1. XELJANZ XR [Suspect]
     Active Substance: TOFACITINIB CITRATE
     Indication: RHEUMATOID ARTHRITIS
     Dosage: 11 MG, UNK

REACTIONS (13)
  - Dyspnoea [Unknown]
  - Vomiting [Unknown]
  - Musculoskeletal stiffness [Unknown]
  - Nausea [Unknown]
  - Dysphagia [Unknown]
  - Depression [Unknown]
  - Pyrexia [Unknown]
  - Alopecia [Unknown]
  - Arthralgia [Unknown]
  - Swelling [Unknown]
  - Dry eye [Unknown]
  - Dry mouth [Unknown]
  - Diarrhoea [Unknown]
